FAERS Safety Report 15294040 (Version 1)
Quarter: 2018Q3

REPORT INFORMATION
  Report Type: Spontaneous
  Country: US (occurrence: US)
  Receive Date: 20180807
  Receipt Date: 20180807
  Transmission Date: 20181010
  Serious: Yes (Disabling)
  Sender: FDA-Public Use
  Company Number: None

PATIENT
  Age: 52 Year
  Sex: Female

DRUGS (5)
  1. TURMERIC/CURCUMIN [Concomitant]
  2. MAGNESIUM [Concomitant]
     Active Substance: MAGNESIUM
  3. VITAMIN D [Concomitant]
     Active Substance: CHOLECALCIFEROL
  4. BOSWELIA [Concomitant]
  5. ZYRTEC [Suspect]
     Active Substance: CETIRIZINE HYDROCHLORIDE
     Indication: MULTIPLE ALLERGIES
     Route: 048

REACTIONS (9)
  - Fatigue [None]
  - Fibromyalgia [None]
  - Nervous system disorder [None]
  - Arthralgia [None]
  - Pruritus [None]
  - Contusion [None]
  - Urinary tract disorder [None]
  - Restlessness [None]
  - Anxiety [None]
